FAERS Safety Report 7463726-1 (Version None)
Quarter: 2011Q2

REPORT INFORMATION
  Report Type: 
  Country: None (occurrence: None)
  Receive Date: 20110506
  Receipt Date: 20110321
  Transmission Date: 20111010
  Serious: Yes (Hospitalization)
  Sender: FDA-Public Use
  Company Number: US-BAYER-201029648NA

PATIENT
  Age: 32 Year
  Sex: Female
  Weight: 100 kg

DRUGS (5)
  1. MARIJUANA [Concomitant]
  2. ADVIL LIQUI-GELS [Concomitant]
     Indication: PAIN
     Dosage: 200 MG, PRN
  3. YAZ [Suspect]
     Indication: PRODUCT USED FOR UNKNOWN INDICATION
     Route: 048
     Dates: start: 20080201, end: 20080801
  4. MOTRIN [Concomitant]
     Indication: PAIN
     Dosage: 200 MG, PRN
  5. ATIVAN [Concomitant]
     Indication: PANIC ATTACK

REACTIONS (3)
  - PAIN [None]
  - PULMONARY EMBOLISM [None]
  - EMOTIONAL DISTRESS [None]
